FAERS Safety Report 9965316 (Version 1)
Quarter: 2014Q1

REPORT INFORMATION
  Report Type: Report from Study
  Country: US (occurrence: US)
  Receive Date: 20140305
  Receipt Date: 20140305
  Transmission Date: 20141002
  Serious: No
  Sender: FDA-Public Use
  Company Number: US-ABBVIE-13P-163-1126225-00

PATIENT
  Age: 46 Year
  Sex: Female

DRUGS (3)
  1. HUMIRA [Suspect]
     Indication: PSORIATIC ARTHROPATHY
     Dosage: ON WEDNESDAY
     Dates: start: 20130501
  2. XANAX [Concomitant]
     Indication: POST-TRAUMATIC STRESS DISORDER
  3. IBUPROFEN [Concomitant]
     Indication: PAIN
     Dosage: 400-800MG

REACTIONS (1)
  - Injection site pain [Recovered/Resolved]
